FAERS Safety Report 26116851 (Version 1)
Quarter: 2025Q4

REPORT INFORMATION
  Report Type: Spontaneous
  Country: US (occurrence: US)
  Receive Date: 20251203
  Receipt Date: 20251203
  Transmission Date: 20260117
  Serious: Yes (Other)
  Sender: ReacX Pharmaceuticals
  Company Number: US-REACX PHARMACEUTICALS-2025RCX00083

PATIENT
  Sex: Female

DRUGS (1)
  1. BUPRENORPHINE [Suspect]
     Active Substance: BUPRENORPHINE
     Indication: Drug use disorder

REACTIONS (2)
  - Suicidal ideation [Recovered/Resolved]
  - Affective disorder [Recovered/Resolved]
